FAERS Safety Report 6437682-9 (Version None)
Quarter: 2009Q4

REPORT INFORMATION
  Report Type: 
  Country: None (occurrence: None)
  Receive Date: 20091112
  Receipt Date: 20091105
  Transmission Date: 20100525
  Serious: Yes (Other)
  Sender: FDA-Public Use
  Company Number: B0602840A

PATIENT
  Sex: Female

DRUGS (13)
  1. LAMICTAL [Suspect]
     Dosage: 200MG PER DAY
     Route: 065
  2. ZOVIRAX [Suspect]
     Indication: HERPES VIRUS INFECTION
     Route: 065
     Dates: start: 20090828
  3. RITALIN [Suspect]
     Dosage: 80MG PER DAY
     Route: 065
  4. SEROQUEL [Suspect]
     Indication: DRUG USE FOR UNKNOWN INDICATION
     Route: 065
  5. LORAZEPAM [Suspect]
     Indication: DRUG USE FOR UNKNOWN INDICATION
     Route: 065
  6. SERTRALINE HCL [Suspect]
     Dosage: 50MG PER DAY
     Route: 065
     Dates: start: 20090825
  7. BUSCOPAN [Suspect]
     Dosage: 10MG THREE TIMES PER DAY
     Route: 065
  8. DAFALGAN [Suspect]
     Indication: DRUG USE FOR UNKNOWN INDICATION
     Dosage: 500MG SIX TIMES PER DAY
     Route: 065
  9. MEFENACID [Suspect]
     Dosage: 500MG THREE TIMES PER DAY
     Route: 065
  10. NEXIUM [Suspect]
     Indication: DRUG USE FOR UNKNOWN INDICATION
     Dosage: 40MG PER DAY
     Route: 065
  11. METOCLOPRAMIDE HYDROCHLORIDE [Suspect]
     Indication: DRUG USE FOR UNKNOWN INDICATION
     Dosage: 3MG FOUR TIMES PER DAY
     Route: 065
  12. RIOPAN [Suspect]
     Indication: DRUG USE FOR UNKNOWN INDICATION
     Dosage: 800MG SIX TIMES PER DAY
     Route: 065
  13. PRAZINE [Suspect]
     Dosage: 150MG PER DAY
     Route: 065

REACTIONS (2)
  - ABORTION INDUCED [None]
  - DRUG EXPOSURE DURING PREGNANCY [None]
